FAERS Safety Report 19516378 (Version 1)
Quarter: 2021Q3

REPORT INFORMATION
  Report Type: Spontaneous
  Country: US (occurrence: US)
  Receive Date: 20210709
  Receipt Date: 20210709
  Transmission Date: 20211014
  Serious: No
  Sender: FDA-Public Use
  Company Number: US-ASTELLAS-2021US009128

PATIENT
  Age: 75 Year
  Sex: Female

DRUGS (1)
  1. MYRBETRIQ [Suspect]
     Active Substance: MIRABEGRON
     Indication: PRODUCT USED FOR UNKNOWN INDICATION
     Dosage: 50 MG, ONCE DAILY (STARTED ABOUT A YEAR AGO)
     Route: 065
     Dates: start: 2020

REACTIONS (5)
  - Blister [Unknown]
  - Skin disorder [Unknown]
  - Therapeutic product effect incomplete [Unknown]
  - Nocturia [Unknown]
  - Skin sensitisation [Unknown]
